FAERS Safety Report 5024192-9 (Version None)
Quarter: 2006Q2

REPORT INFORMATION
  Report Type: 
  Country: None (occurrence: None)
  Receive Date: 20060428
  Receipt Date: 20050323
  Transmission Date: 20061013
  Serious: Yes (Hospitalization)
  Sender: FDA-Public Use
  Company Number: 2005P1000195

PATIENT
  Age: 50 Year
  Sex: Female

DRUGS (7)
  1. BUSULFAN (BUSULFAN) [Suspect]
     Indication: BONE MARROW CONDITIONING REGIMEN
     Dosage: 170.4 MG; QD; IV
     Route: 042
     Dates: start: 20021203, end: 20021206
  2. TRIMETHOPRIM + SULFAMETHOXAZOLE [Concomitant]
  3. FAMOTIDINE [Concomitant]
  4. PREDNISOLONE [Concomitant]
  5. CYCLOSPORINE [Concomitant]
  6. ACYCLOVIR [Concomitant]
  7. FLUCONAZOLE [Concomitant]

REACTIONS (1)
  - GRAFT VERSUS HOST DISEASE [None]
